FAERS Safety Report 7605113-9 (Version None)
Quarter: 2011Q3

REPORT INFORMATION
  Report Type: 
  Country: None (occurrence: None)
  Receive Date: 20110713
  Receipt Date: 20110128
  Transmission Date: 20111222
  Serious: Yes (Hospitalization, Other)
  Sender: FDA-Public Use
  Company Number: US-BAYER-200840442NA

PATIENT
  Age: 67 Year
  Sex: Female
  Weight: 58.5 kg

DRUGS (17)
  1. TRASYLOL [Suspect]
     Indication: TRICUSPID VALVE REPLACEMENT
  2. MILRINONE [Concomitant]
     Dosage: UNK
     Route: 042
     Dates: start: 20061116, end: 20061116
  3. EPINEPHRINE [Concomitant]
     Dosage: UNK
     Route: 042
     Dates: start: 20061116, end: 20061116
  4. RED BLOOD CELLS [Concomitant]
     Dosage: 10 U, UNK
     Route: 042
     Dates: start: 20061116
  5. WARFARIN SODIUM [Concomitant]
     Dosage: 7.5 MG/5MG ROTATED DAILY
     Route: 048
  6. AMIODARONE HCL [Concomitant]
     Dosage: UNK
     Route: 042
     Dates: start: 20061116
  7. PLATELETS [Concomitant]
     Dosage: 16 U, UNK
     Route: 042
     Dates: start: 20061116
  8. TRASYLOL [Suspect]
     Indication: MITRAL VALVE REPLACEMENT
     Dosage: 200 ML, LOADING DOSE
     Route: 042
     Dates: start: 20061116, end: 20061116
  9. TRASYLOL [Suspect]
     Indication: COX-MAZE PROCEDURE
  10. CEFOTAXIME [Concomitant]
     Dosage: UNK
     Route: 042
     Dates: start: 20061116, end: 20061116
  11. LOVENOX [Concomitant]
     Dosage: UNK UNK, BID
     Route: 058
  12. FRESH FROZEN PLASMA [Concomitant]
     Dosage: 12 U, UNK
     Route: 042
     Dates: start: 20061116
  13. LANOXIN [Concomitant]
     Dosage: 0.25 MG, QD
     Route: 048
  14. VANCOMYCIN [Concomitant]
     Dosage: UNK
     Route: 042
     Dates: start: 20061116, end: 20061116
  15. HEPARIN [Concomitant]
     Dosage: UNK
     Route: 042
     Dates: start: 20061116
  16. INSULIN [Concomitant]
     Dosage: UNK
     Route: 042
     Dates: start: 20061116, end: 20061116
  17. TOPROL-XL [Concomitant]
     Dosage: 50 MG, BID
     Route: 048

REACTIONS (8)
  - RENAL FAILURE [None]
  - FEAR [None]
  - INJURY [None]
  - PAIN [None]
  - UNEVALUABLE EVENT [None]
  - DEPRESSION [None]
  - ANXIETY [None]
  - ANHEDONIA [None]
